FAERS Safety Report 5388850-9 (Version None)
Quarter: 2007Q3

REPORT INFORMATION
  Report Type: 
  Country: None (occurrence: None)
  Receive Date: 20070712
  Receipt Date: 20070627
  Transmission Date: 20080115
  Serious: Yes (Hospitalization)
  Sender: FDA-Public Use
  Company Number: SPI200700407

PATIENT
  Age: 58 Year
  Sex: Male

DRUGS (2)
  1. AMITIZA [Suspect]
     Indication: CONSTIPATION
     Dosage: 24 MCG,
     Dates: start: 20070101, end: 20070601
  2. MULTIPLE UNSPECIFIED MEDICATIONS [Concomitant]

REACTIONS (7)
  - ANOREXIA [None]
  - DEHYDRATION [None]
  - NAUSEA [None]
  - PYREXIA [None]
  - SWELLING FACE [None]
  - URINARY TRACT INFECTION [None]
  - VOMITING [None]
